FAERS Safety Report 6060168-0 (Version None)
Quarter: 2009Q1

REPORT INFORMATION
  Report Type: 
  Country: None (occurrence: None)
  Receive Date: 20090128
  Receipt Date: 20090119
  Transmission Date: 20090719
  Serious: Yes (Hospitalization)
  Sender: FDA-Public Use
  Company Number: 2009AP000249

PATIENT
  Age: 53 Year
  Sex: Male

DRUGS (14)
  1. CITALOPRAM HYDROBROMIDE [Suspect]
     Indication: ANXIETY DISORDER
     Dosage: 20 MG;PO;QD
     Route: 048
     Dates: start: 19990101, end: 20081213
  2. IBUPROFEN TABLETS [Suspect]
     Indication: PAIN
     Dosage: 400 MG;TID PO
     Route: 048
     Dates: start: 19940101, end: 20081213
  3. CODEIN PHOSPHATE (CODEINE PHOSPHATE) [Concomitant]
  4. ACETAMINOPHEN [Concomitant]
  5. DIAZEPAM [Concomitant]
  6. BETAMETHASONE DIPROPIONATE (BETAMETHASONE DIPROPIONATE) [Concomitant]
  7. CLOTRIMAZOLE [Concomitant]
  8. ALGINIC ACID (ALGINIC ACID) [Concomitant]
  9. CALCIUM CARBONATE (CALCIUM CARBONATE) [Concomitant]
  10. MAGNESIUM TRISILICATE (MAGNESIUM TRISILICATE) [Concomitant]
  11. ALUMINIUM HYDROXIDE GEL, DRIED (ALUMINIUM HYDROXIDE GEL, DRIED) [Concomitant]
  12. SODIUM ALGINATE (SODIUM ALGINATE) [Concomitant]
  13. SODIUM BICARBONATE IN PLASTIC CONTAINER [Concomitant]
  14. SENNA (SENNA) [Concomitant]

REACTIONS (1)
  - PERFORATED ULCER [None]
